FAERS Safety Report 17705794 (Version 1)
Quarter: 2020Q2

REPORT INFORMATION
  Report Type: Report from Study
  Country: DE (occurrence: DE)
  Receive Date: 20200424
  Receipt Date: 20200424
  Transmission Date: 20200714
  Serious: Yes (Other)
  Sender: FDA-Public Use
  Company Number: NVSC2020DE052305

PATIENT
  Age: 50 Year
  Sex: Male

DRUGS (1)
  1. CRIZANLIZUMAB [Suspect]
     Active Substance: CRIZANLIZUMAB
     Indication: SICKLE CELL ANAEMIA
     Dosage: 5 MG/KG
     Route: 041
     Dates: start: 20190523

REACTIONS (1)
  - Sickle cell anaemia with crisis [Recovering/Resolving]
